FAERS Safety Report 13109047 (Version 1)
Quarter: 2017Q1

REPORT INFORMATION
  Report Type: Spontaneous
  Country: FR (occurrence: FR)
  Receive Date: 20170112
  Receipt Date: 20170112
  Transmission Date: 20170428
  Serious: Yes (Hospitalization)
  Sender: FDA-Public Use
  Company Number: FR-PFIZER INC-2017008598

PATIENT
  Age: 46 Year
  Sex: Male

DRUGS (13)
  1. TRACLEER [Suspect]
     Active Substance: BOSENTAN
     Indication: PULMONARY ARTERIAL HYPERTENSION
     Dosage: UNK
  2. KALEORID [Concomitant]
     Active Substance: POTASSIUM CHLORIDE
  3. PARLODEL [Concomitant]
     Active Substance: BROMOCRIPTINE MESYLATE
  4. MODAMIDE [Concomitant]
     Active Substance: AMILORIDE HYDROCHLORIDE
  5. REVATIO [Suspect]
     Active Substance: SILDENAFIL CITRATE
     Indication: PULMONARY ARTERIAL HYPERTENSION
     Dosage: UNK
  6. PANTOPRAZOLE [Suspect]
     Active Substance: PANTOPRAZOLE SODIUM
     Indication: PROPHYLAXIS
     Dosage: UNK
  7. BURINEX [Concomitant]
     Active Substance: BUMETANIDE
  8. CARDENSIEL [Concomitant]
     Active Substance: BISOPROLOL FUMARATE
  9. ESIDREX [Suspect]
     Active Substance: HYDROCHLOROTHIAZIDE
     Indication: PULMONARY ARTERIAL HYPERTENSION
     Dosage: UNK
  10. NATISPRAY [Concomitant]
     Active Substance: NITROGLYCERIN
  11. LEVOTHYROX [Concomitant]
     Active Substance: LEVOTHYROXINE
  12. PREVISCAN /00789001/ [Concomitant]
     Active Substance: FLUINDIONE
  13. TARDYFERON [Concomitant]
     Active Substance: FERROUS SULFATE

REACTIONS (4)
  - Cholestasis [Unknown]
  - Renal failure [Unknown]
  - Pancytopenia [Not Recovered/Not Resolved]
  - Haemolytic anaemia [Not Recovered/Not Resolved]

NARRATIVE: CASE EVENT DATE: 20161118
